FAERS Safety Report 8672027 (Version 4)
Quarter: 2014Q1

REPORT INFORMATION
  Report Type: Spontaneous
  Country: AR (occurrence: AR)
  Receive Date: 20120719
  Receipt Date: 20140207
  Transmission Date: 20141002
  Serious: Yes (Other)
  Sender: FDA-Public Use
  Company Number: AR-AMGEN-ARGSP2012043503

PATIENT
  Age: 48 Year
  Sex: Female

DRUGS (2)
  1. ENBREL [Suspect]
     Indication: RHEUMATOID ARTHRITIS
     Dosage: 50 MG, WEEKLY
     Route: 058
     Dates: start: 20081102, end: 201206
  2. MEPREDNISONE [Concomitant]
     Dosage: UNK

REACTIONS (3)
  - Device dislocation [Not Recovered/Not Resolved]
  - Fall [Unknown]
  - Device related infection [Not Recovered/Not Resolved]
